FAERS Safety Report 9359245 (Version 2)
Quarter: 2013Q2

REPORT INFORMATION
  Report Type: Spontaneous
  Country: US (occurrence: US)
  Receive Date: 20130620
  Receipt Date: 20130628
  Transmission Date: 20140414
  Serious: Yes (Other)
  Sender: FDA-Public Use
  Company Number: US-PFIZER INC-2013180747

PATIENT
  Age: 50 Year
  Sex: Female
  Weight: 88.44 kg

DRUGS (5)
  1. EPIPEN [Suspect]
     Indication: HYPERSENSITIVITY
     Dosage: 0.3 MG, AS NEEDED
     Route: 030
     Dates: start: 20130529, end: 20130529
  2. ALBUTEROL SOLUTION FOR NEBULIZER [Concomitant]
     Indication: ASTHMA
     Dosage: UNK
     Route: 048
  3. PROVENTIL MDI [Concomitant]
     Indication: ASTHMA
     Dosage: UNK, AS NEEDED
     Route: 048
  4. ADVAIR [Concomitant]
     Indication: ASTHMA
     Dosage: UNK
     Route: 048
  5. SPIRONOLACTONE [Concomitant]
     Indication: HYPERTENSION
     Dosage: 25 MG, 1X/DAY
     Route: 048

REACTIONS (1)
  - Drug ineffective [Recovered/Resolved]
